FAERS Safety Report 5457262-1 (Version None)
Quarter: 2007Q3

REPORT INFORMATION
  Report Type: 
  Country: None (occurrence: None)
  Receive Date: 20070918
  Receipt Date: 20070131
  Transmission Date: 20080115
  Serious: No
  Sender: FDA-Public Use
  Company Number: US-ASTRAZENECA-2007UW01995

PATIENT
  Sex: Female

DRUGS (6)
  1. SEROQUEL [Suspect]
     Route: 048
  2. VENTOLIN HFA [Concomitant]
  3. ZYRTEC-D [Concomitant]
  4. SOMA [Concomitant]
  5. VICOPROFEN [Concomitant]
  6. BONIVA [Concomitant]

REACTIONS (3)
  - DRUG INTERACTION [None]
  - RESTLESSNESS [None]
  - WEIGHT INCREASED [None]
